FAERS Safety Report 4847854-2 (Version None)
Quarter: 2005Q4

REPORT INFORMATION
  Report Type: 
  Country: None (occurrence: None)
  Receive Date: 20051207
  Receipt Date: 20051125
  Transmission Date: 20060501
  Serious: Yes (Hospitalization)
  Sender: FDA-Public Use
  Company Number: PHBS2005AU17714

PATIENT
  Age: 30 Year
  Sex: Female

DRUGS (2)
  1. CARBAMAZEPINE [Suspect]
     Dosage: 4 G, ONCE/SINGLE
     Route: 065
  2. ALPRAZOLAM [Suspect]
     Dosage: 40 MG, ONCE/SINGLE
     Route: 065

REACTIONS (10)
  - ABDOMINAL PAIN [None]
  - BEZOAR [None]
  - INTENTIONAL DRUG MISUSE [None]
  - INTUBATION [None]
  - LAPAROTOMY [None]
  - NAUSEA [None]
  - SMALL INTESTINAL OBSTRUCTION [None]
  - SOMNOLENCE [None]
  - URINARY TRACT INFECTION [None]
  - VOMITING [None]
